FAERS Safety Report 5179516-9 (Version None)
Quarter: 2006Q4

REPORT INFORMATION
  Report Type: 
  Country: None (occurrence: None)
  Receive Date: 20061211
  Receipt Date: 20061120
  Transmission Date: 20070319
  Serious: Yes (Life-Threatening, Hospitalization)
  Sender: FDA-Public Use
  Company Number: 2006SP007052

PATIENT
  Age: 51 Year
  Sex: Female
  Weight: 55 kg

DRUGS (7)
  1. TEMODAL [Suspect]
     Indication: ASTROCYTOMA
     Dosage: 240 MG;QD;PO; 320 MG;QD;PO
     Route: 048
     Dates: start: 20060922, end: 20060926
  2. TEMODAL [Suspect]
     Indication: ASTROCYTOMA
     Dosage: 240 MG;QD;PO; 320 MG;QD;PO
     Route: 048
     Dates: start: 20061020, end: 20061024
  3. NIDRAN [Concomitant]
  4. ONCOVIN [Concomitant]
  5. DEPAKENE [Concomitant]
  6. TEGRETOL [Concomitant]
  7. PHENOBARBITAL TAB [Concomitant]

REACTIONS (2)
  - CEREBRAL HAEMORRHAGE [None]
  - LOSS OF CONSCIOUSNESS [None]
